FAERS Safety Report 9229906 (Version 1)
Quarter: 2013Q2

REPORT INFORMATION
  Report Type: Spontaneous
  Country: US (occurrence: None)
  Receive Date: 20130412
  Receipt Date: 20130412
  Transmission Date: 20140414
  Serious: Yes (Life-Threatening)
  Sender: FDA-Public Use
  Company Number: None

PATIENT
  Age: 70 Year
  Sex: Male
  Weight: 90 kg

DRUGS (1)
  1. VANCOMYCIN [Suspect]
     Route: 042
     Dates: start: 20130228, end: 20130307

REACTIONS (6)
  - Rash [None]
  - Transaminases increased [None]
  - Renal injury [None]
  - Eosinophil count increased [None]
  - Rash morbilliform [None]
  - Drug reaction with eosinophilia and systemic symptoms [None]
